FAERS Safety Report 7885461-8 (Version None)
Quarter: 2011Q4

REPORT INFORMATION
  Report Type: 
  Country: None (occurrence: None)
  Receive Date: 20111102
  Receipt Date: 20111028
  Transmission Date: 20120403
  Serious: Yes (Hospitalization, Other)
  Sender: FDA-Public Use
  Company Number: US-ROCHE-1004434

PATIENT
  Age: 56 Year
  Sex: Male
  Weight: 69.7 kg

DRUGS (2)
  1. AVASTIN [Suspect]
     Indication: GLIOBLASTOMA MULTIFORME
     Route: 042
     Dates: start: 20100916
  2. TEMOZOLOMIDE [Suspect]
     Indication: GLIOBLASTOMA MULTIFORME
     Route: 048
     Dates: start: 20100916

REACTIONS (5)
  - ATAXIA [None]
  - PLATELET COUNT DECREASED [None]
  - CD4 LYMPHOCYTES DECREASED [None]
  - LYMPHOCYTE COUNT DECREASED [None]
  - PARAESTHESIA [None]
